FAERS Safety Report 6893242-7 (Version None)
Quarter: 2010Q3

REPORT INFORMATION
  Report Type: 
  Country: None (occurrence: None)
  Receive Date: 20100731
  Receipt Date: 20090710
  Transmission Date: 20110219
  Serious: Yes (Other)
  Sender: FDA-Public Use
  Company Number: US-PFIZER INC-2009221641

PATIENT
  Sex: Female
  Weight: 58.957 kg

DRUGS (1)
  1. FLAGYL [Suspect]
     Indication: GASTROINTESTINAL DISORDER

REACTIONS (3)
  - HYPERSENSITIVITY [None]
  - OEDEMA PERIPHERAL [None]
  - RASH [None]
